FAERS Safety Report 5475834-5 (Version None)
Quarter: 2007Q4

REPORT INFORMATION
  Report Type: 
  Country: None (occurrence: None)
  Receive Date: 20071003
  Receipt Date: 20071001
  Transmission Date: 20080405
  Serious: Yes (Other)
  Sender: FDA-Public Use
  Company Number: B0489455A

PATIENT
  Age: 75 Year
  Sex: Female

DRUGS (12)
  1. KREDEX [Suspect]
     Dosage: 6.25MG TWICE PER DAY
     Route: 048
     Dates: start: 20051215
  2. LYRICA [Suspect]
     Indication: DRUG USE FOR UNKNOWN INDICATION
     Dosage: 150MG TWICE PER DAY
     Route: 048
     Dates: start: 20070315
  3. ZOMETA [Suspect]
     Dosage: 4MG PER DAY
     Route: 042
     Dates: start: 20050915, end: 20070630
  4. PERINDOPRIL ERBUMINE [Suspect]
     Indication: HYPERTENSION
     Dosage: 2MG PER DAY
     Route: 048
  5. EXEMESTANE [Suspect]
     Dosage: 25MG PER DAY
     Route: 048
     Dates: start: 20060915
  6. CORTANCYL [Suspect]
     Indication: DRUG USE FOR UNKNOWN INDICATION
     Dosage: 15MG PER DAY
     Route: 048
     Dates: start: 19870615
  7. PLAVIX [Suspect]
     Indication: ARTERITIS
     Dosage: 75MG PER DAY
     Route: 065
     Dates: start: 19890615
  8. LEVOTHYROX [Suspect]
     Indication: HYPOTHYROIDISM
     Dosage: 100MCG PER DAY
     Route: 048
     Dates: start: 19890615
  9. HERCEPTIN [Concomitant]
     Route: 065
     Dates: start: 20050915, end: 20051215
  10. DURAGESIC-100 [Concomitant]
     Route: 065
     Dates: start: 20050915
  11. PARACETAMOL [Concomitant]
     Route: 065
     Dates: start: 20050915
  12. FEMARA [Concomitant]
     Route: 065
     Dates: start: 20051215, end: 20060915

REACTIONS (1)
  - OSTEONECROSIS [None]
